FAERS Safety Report 19737129 (Version 1)
Quarter: 2021Q3

REPORT INFORMATION
  Report Type: Spontaneous
  Country: US (occurrence: US)
  Receive Date: 20210820
  Receipt Date: 20210820
  Transmission Date: 20211014
  Serious: Yes (Hospitalization)
  Sender: FDA-Public Use
  Company Number: None

PATIENT
  Age: 77 Year
  Sex: Female
  Weight: 56.7 kg

DRUGS (13)
  1. REGEN?COV [Suspect]
     Active Substance: CASIRIVIMAB\IMDEVIMAB
     Indication: COVID-19
     Route: 042
  2. MEMANTINE. [Concomitant]
     Active Substance: MEMANTINE
  3. VITAMIN C [Concomitant]
     Active Substance: ASCORBIC ACID
  4. MULTIVITAMIN [Concomitant]
     Active Substance: VITAMINS
  5. CODEINE?GUAIFENESIN [Concomitant]
     Active Substance: CODEINE PHOSPHATE\GUAIFENESIN
  6. GLUCOSAMINE?CHONDROITIN [Concomitant]
     Active Substance: CHONDROITIN SULFATE (BOVINE)\GLUCOSAMINE SULFATE
  7. MELOXICAM. [Concomitant]
     Active Substance: MELOXICAM
  8. TUMERIC [Concomitant]
     Active Substance: HERBALS\TURMERIC
  9. VALACYCLOVIR [Concomitant]
     Active Substance: VALACYCLOVIR HYDROCHLORIDE
  10. PROGESTERONE. [Concomitant]
     Active Substance: PROGESTERONE
  11. BENZONATATE. [Concomitant]
     Active Substance: BENZONATATE
  12. ESTRADIOL. [Concomitant]
     Active Substance: ESTRADIOL
  13. VITAMIN B12 [Concomitant]
     Active Substance: CYANOCOBALAMIN

REACTIONS (7)
  - Encephalopathy [None]
  - Cough [None]
  - Dyspnoea [None]
  - Chills [None]
  - Dizziness [None]
  - Fatigue [None]
  - Hypoxia [None]
